FAERS Safety Report 22005993 (Version 1)
Quarter: 2023Q1

REPORT INFORMATION
  Report Type: Other
  Country: US (occurrence: None)
  Receive Date: 20230217
  Receipt Date: 20230217
  Transmission Date: 20230418
  Serious: Yes (Other)
  Sender: FDA-Public Use
  Company Number: US-ROCHE-3284645

PATIENT
  Age: 92 Year
  Sex: Female

DRUGS (1)
  1. ESBRIET [Suspect]
     Active Substance: PIRFENIDONE
     Indication: Interstitial lung disease
     Dosage: UNKNOWN
     Route: 065

REACTIONS (2)
  - Deafness [Unknown]
  - Blindness [Unknown]
